FAERS Safety Report 6100161-2 (Version None)
Quarter: 2009Q1

REPORT INFORMATION
  Report Type: 
  Country: None (occurrence: None)
  Receive Date: 20090302
  Receipt Date: 20090302
  Transmission Date: 20090719
  Serious: Yes (Other)
  Sender: FDA-Public Use
  Company Number: None

PATIENT
  Sex: Female
  Weight: 102.5129 kg

DRUGS (1)
  1. BUPROPION 300 MG XL ANCHEN PHARM [Suspect]
     Indication: DEPRESSION
     Dosage: 300 MG 1 TAB DAILY PO
     Route: 048
     Dates: start: 20081102, end: 20090205

REACTIONS (7)
  - DISTURBANCE IN ATTENTION [None]
  - ECONOMIC PROBLEM [None]
  - INSOMNIA [None]
  - JUDGEMENT IMPAIRED [None]
  - MENTAL DISORDER [None]
  - PRODUCT QUALITY ISSUE [None]
  - WEIGHT INCREASED [None]
